FAERS Safety Report 11054342 (Version 1)
Quarter: 2015Q2

REPORT INFORMATION
  Report Type: Report from Study
  Country: US (occurrence: US)
  Receive Date: 20150422
  Receipt Date: 20150422
  Transmission Date: 20150821
  Serious: Yes (Hospitalization)
  Sender: FDA-Public Use
  Company Number: US-ROCHE-1562957

PATIENT
  Age: 72 Year
  Sex: Female

DRUGS (19)
  1. NOXAFIL [Concomitant]
     Active Substance: POSACONAZOLE
     Route: 048
  2. DEXAMETHASONE (ORAL) [Concomitant]
     Active Substance: DEXAMETHASONE
     Route: 048
  3. RESTASIS [Concomitant]
     Active Substance: CYCLOSPORINE
     Dosage: 2 DROPS
     Route: 048
  4. DECADRON [Concomitant]
     Active Substance: DEXAMETHASONE
     Dosage: 0.5 MG/ML
     Route: 065
  5. ASPIRIN. [Concomitant]
     Active Substance: ASPIRIN
     Route: 048
  6. BIAXIN [Concomitant]
     Active Substance: CLARITHROMYCIN
     Route: 048
  7. LOPRESSOR [Concomitant]
     Active Substance: METOPROLOL TARTRATE
     Route: 048
  8. LOPRESSOR [Concomitant]
     Active Substance: METOPROLOL TARTRATE
     Route: 048
  9. ZOFRAN [Concomitant]
     Active Substance: ONDANSETRON HYDROCHLORIDE
     Route: 048
  10. FLECAINIDE ACETATE. [Concomitant]
     Active Substance: FLECAINIDE ACETATE
  11. BIAXIN [Concomitant]
     Active Substance: CLARITHROMYCIN
     Dosage: 1/2 TAB
     Route: 048
  12. NOXAFIL [Concomitant]
     Active Substance: POSACONAZOLE
     Route: 048
  13. TAMBOCOR [Concomitant]
     Active Substance: FLECAINIDE ACETATE
     Route: 048
  14. RITUXIMAB [Suspect]
     Active Substance: RITUXIMAB
     Indication: CHRONIC GRAFT VERSUS HOST DISEASE
     Route: 042
     Dates: start: 20120627, end: 20120718
  15. K-TAB [Concomitant]
     Active Substance: POTASSIUM CHLORIDE
     Route: 065
  16. ACYCLOVIR. [Concomitant]
     Active Substance: ACYCLOVIR
     Route: 048
  17. RITUXIMAB [Suspect]
     Active Substance: RITUXIMAB
     Dosage: LAST DOSE PRIOR TO SAE: 21/MAR/2013
     Route: 042
     Dates: start: 20120730, end: 20130321
  18. CELLCEPT [Suspect]
     Active Substance: MYCOPHENOLATE MOFETIL\MYCOPHENOLATE MOFETIL HYDROCHLORIDE
     Indication: PRODUCT USED FOR UNKNOWN INDICATION
     Route: 048
  19. CELLCEPT [Suspect]
     Active Substance: MYCOPHENOLATE MOFETIL\MYCOPHENOLATE MOFETIL HYDROCHLORIDE
     Route: 048

REACTIONS (2)
  - Febrile neutropenia [Unknown]
  - Febrile neutropenia [Unknown]

NARRATIVE: CASE EVENT DATE: 20130401
